FAERS Safety Report 8001527-6 (Version None)
Quarter: 2011Q4

REPORT INFORMATION
  Report Type: 
  Country: None (occurrence: None)
  Receive Date: 20111222
  Receipt Date: 20111216
  Transmission Date: 20120403
  Serious: Yes (Hospitalization, Other)
  Sender: FDA-Public Use
  Company Number: US-PFIZER INC-2011248642

PATIENT
  Sex: Female

DRUGS (1)
  1. XALKORI [Suspect]
     Indication: TRACHEAL CANCER
     Dosage: 250 MG, UNK
     Dates: start: 20111013

REACTIONS (9)
  - HEART RATE DECREASED [None]
  - ASTHENIA [None]
  - DECREASED APPETITE [None]
  - PULMONARY EMBOLISM [None]
  - VOMITING [None]
  - CONSTIPATION [None]
  - BLOOD PRESSURE DECREASED [None]
  - NAUSEA [None]
  - FATIGUE [None]
